FAERS Safety Report 9573282 (Version 2)
Quarter: 2013Q4

REPORT INFORMATION
  Report Type: Report from Study
  Country: GB (occurrence: GB)
  Receive Date: 20131001
  Receipt Date: 20131215
  Transmission Date: 20140711
  Serious: Yes (Hospitalization)
  Sender: FDA-Public Use
  Company Number: GB-ROCHE-1282978

PATIENT
  Age: 81 Year
  Sex: Male

DRUGS (2)
  1. RANIBIZUMAB [Suspect]
     Indication: AGE-RELATED MACULAR DEGENERATION
     Dosage: LAST DOSE WAS ON 08/AUG/2013.
     Route: 050
     Dates: start: 20120823
  2. ALLOPURINOL [Concomitant]
     Indication: GOUT
     Route: 065
     Dates: start: 20100318

REACTIONS (4)
  - Asthenia [Recovered/Resolved]
  - Faecal incontinence [Recovered/Resolved]
  - Rectal haemorrhage [Recovered/Resolved]
  - Faeces discoloured [Recovered/Resolved]
